FAERS Safety Report 22042964 (Version 4)
Quarter: 2023Q2

REPORT INFORMATION
  Report Type: Report from Study
  Country: None (occurrence: GB)
  Receive Date: 20230228
  Receipt Date: 20230512
  Transmission Date: 20230721
  Serious: Yes (Other)
  Sender: FDA-Public Use
  Company Number: GB-Therakind Limited-2138516

PATIENT
  Age: 64 Year
  Sex: Female

DRUGS (2)
  1. METHOTREXATE [Suspect]
     Active Substance: METHOTREXATE
     Indication: Product used for unknown indication
  2. ETANERCEPT [Suspect]
     Active Substance: ETANERCEPT
     Dates: start: 20210312

REACTIONS (5)
  - Pneumonia [Unknown]
  - Rheumatoid arthritis [Not Recovered/Not Resolved]
  - Dizziness [Unknown]
  - Gait disturbance [Not Recovered/Not Resolved]
  - Immunodeficiency [Not Recovered/Not Resolved]
